FAERS Safety Report 15484048 (Version 1)
Quarter: 2018Q4

REPORT INFORMATION
  Report Type: Spontaneous
  Country: US (occurrence: US)
  Receive Date: 20181003
  Receipt Date: 20181003
  Transmission Date: 20190205
  Serious: Yes (Hospitalization)
  Sender: FDA-Public Use
  Company Number: None

PATIENT
  Age: 63 Year
  Sex: Male
  Weight: 58.5 kg

DRUGS (8)
  1. LISINOPRIL. [Concomitant]
     Active Substance: LISINOPRIL
  2. SERTRALINE [Concomitant]
     Active Substance: SERTRALINE HYDROCHLORIDE
  3. DULOXETINE 30 MG CAP CIT GENERIC FOR CYMBALTA 30 MG CAP [Suspect]
     Active Substance: DULOXETINE
     Indication: PAIN
     Dosage: ?          QUANTITY:60 CAPSULE(S);?
     Route: 048
     Dates: start: 20180708, end: 20180806
  4. DULOXETINE 30 MG CAP CIT GENERIC FOR CYMBALTA 30 MG CAP [Suspect]
     Active Substance: DULOXETINE
     Indication: SLEEP DISORDER
     Dosage: ?          QUANTITY:60 CAPSULE(S);?
     Route: 048
     Dates: start: 20180708, end: 20180806
  5. ASPIRIN. [Concomitant]
     Active Substance: ASPIRIN
  6. FISH OIL [Concomitant]
     Active Substance: FISH OIL
  7. NAPROXEN. [Concomitant]
     Active Substance: NAPROXEN
  8. ALIVE MEN^S 50+ MULTI-VITAMIN [Concomitant]

REACTIONS (3)
  - Drug hypersensitivity [None]
  - Nausea [None]
  - Vomiting [None]

NARRATIVE: CASE EVENT DATE: 20180709
